FAERS Safety Report 17157991 (Version 1)
Quarter: 2019Q4

REPORT INFORMATION
  Report Type: Spontaneous
  Country: DE (occurrence: DE)
  Receive Date: 20191216
  Receipt Date: 20191216
  Transmission Date: 20200122
  Serious: Yes (Other)
  Sender: FDA-Public Use
  Company Number: DE-TEVA-780705GER

PATIENT
  Age: 21 Year
  Sex: Female
  Weight: 61 kg

DRUGS (2)
  1. FOLSAEURE [Concomitant]
     Active Substance: FOLIC ACID
     Indication: PROPHYLAXIS OF NEURAL TUBE DEFECT
     Dosage: .8 MILLIGRAM DAILY;
     Route: 048
  2. METHOTREXAT [Suspect]
     Active Substance: METHOTREXATE
     Indication: RHEUMATOID ARTHRITIS
     Dosage: PATIENT FORGOT TO TAKE IT AFTERWARDS
     Route: 058
     Dates: start: 20160326, end: 20160326

REACTIONS (2)
  - Abortion spontaneous [Recovered/Resolved]
  - Maternal exposure during pregnancy [Unknown]
